FAERS Safety Report 5684212-5 (Version None)
Quarter: 2008Q1

REPORT INFORMATION
  Report Type: 
  Country: None (occurrence: None)
  Receive Date: 20080328
  Receipt Date: 20080125
  Transmission Date: 20080703
  Serious: No
  Sender: FDA-Public Use
  Company Number: US-AMGEN-KDL262333

PATIENT
  Sex: Female
  Weight: 50.8 kg

DRUGS (1)
  1. NEULASTA [Suspect]
     Indication: CHEMOTHERAPY
     Dates: start: 20080112

REACTIONS (3)
  - HEADACHE [None]
  - NAUSEA [None]
  - PAIN [None]
